FAERS Safety Report 7883436-6 (Version None)
Quarter: 2011Q4

REPORT INFORMATION
  Report Type: 
  Country: None (occurrence: None)
  Receive Date: 20111102
  Receipt Date: 20111021
  Transmission Date: 20120403
  Serious: Yes (Hospitalization)
  Sender: FDA-Public Use
  Company Number: US-JNJFOC-20111000561

PATIENT
  Sex: Female
  Weight: 77.11 kg

DRUGS (6)
  1. AMBIEN [Concomitant]
     Dosage: AT BEDTIME, AS NEEDED.
     Route: 048
  2. REMICADE [Suspect]
     Route: 042
     Dates: start: 20111012
  3. PERCOCET [Concomitant]
     Dosage: 10-325 MG, 1-2 TABLETS EVERY 4-6 HOURS AS NECESSARY
     Route: 048
  4. VICODIN [Concomitant]
     Dosage: 5/500 MG
     Route: 065
  5. REMICADE [Suspect]
     Indication: CROHN'S DISEASE
     Route: 042
  6. SOLU-MEDROL [Concomitant]
     Indication: PREMEDICATION
     Route: 065

REACTIONS (1)
  - CROHN'S DISEASE [None]
